FAERS Safety Report 8227690-X (Version None)
Quarter: 2012Q1

REPORT INFORMATION
  Report Type: 
  Country: None (occurrence: None)
  Receive Date: 20120322
  Receipt Date: 20120313
  Transmission Date: 20120608
  Serious: Yes (Hospitalization)
  Sender: FDA-Public Use
  Company Number: IT-PFIZER INC-2012071261

PATIENT
  Age: 86 Year
  Sex: Male

DRUGS (4)
  1. PANTOPRAZOLE [Suspect]
  2. LASIX [Concomitant]
     Dosage: 25 MG, UNK
  3. PANTOPRAZOLE [Suspect]
     Indication: ABDOMINAL PAIN UPPER
     Dosage: 20 MG, 1X/DAY
     Route: 048
     Dates: start: 20120129, end: 20120215
  4. COUMADIN [Concomitant]
     Indication: CARDIAC VALVE PROSTHESIS USER
     Dosage: 5 MG, UNK
     Dates: start: 20050418, end: 20120215

REACTIONS (2)
  - HEPATITIS ACUTE [None]
  - HYPERBILIRUBINAEMIA [None]
